FAERS Safety Report 5682600-4 (Version None)
Quarter: 2008Q1

REPORT INFORMATION
  Report Type: 
  Country: None (occurrence: None)
  Receive Date: 20080327
  Receipt Date: 20080222
  Transmission Date: 20080703
  Serious: No
  Sender: FDA-Public Use
  Company Number: US-BRISTOL-MYERS SQUIBB COMPANY-14088249

PATIENT
  Sex: Female

DRUGS (4)
  1. SPRYCEL [Suspect]
     Indication: CHRONIC MYELOID LEUKAEMIA
     Dates: start: 20080208
  2. DETROL [Concomitant]
  3. DIAZEPAM [Concomitant]
  4. WELLBUTRIN [Concomitant]

REACTIONS (1)
  - THROAT IRRITATION [None]
